FAERS Safety Report 7218023-6 (Version None)
Quarter: 2011Q1

REPORT INFORMATION
  Report Type: 
  Country: None (occurrence: None)
  Receive Date: 20110110
  Receipt Date: 20110105
  Transmission Date: 20110831
  Serious: Yes (Other)
  Sender: FDA-Public Use
  Company Number: US-AMGEN-USASP2011000677

PATIENT

DRUGS (12)
  1. METFORMIN [Concomitant]
  2. KLOR-CON [Concomitant]
  3. PROSCAR [Concomitant]
  4. ACTONEL [Concomitant]
  5. INSULIN [Concomitant]
  6. ARANESP [Suspect]
     Indication: MYELODYSPLASTIC SYNDROME
     Dates: start: 20101201, end: 20101229
  7. PLAVIX [Concomitant]
  8. NIASPAN [Concomitant]
  9. PROCRIT [Suspect]
     Indication: MYELODYSPLASTIC SYNDROME
  10. LIPITOR [Concomitant]
  11. LASIX [Concomitant]
  12. LANTUS [Concomitant]

REACTIONS (6)
  - FATIGUE [None]
  - BODY TEMPERATURE DECREASED [None]
  - FEELING HOT [None]
  - SPINAL COMPRESSION FRACTURE [None]
  - MALAISE [None]
  - HAEMOGLOBIN DECREASED [None]
